FAERS Safety Report 9331896 (Version 7)
Quarter: 2016Q2

REPORT INFORMATION
  Report Type: Spontaneous
  Country: US (occurrence: US)
  Receive Date: 20130605
  Receipt Date: 20160401
  Transmission Date: 20160815
  Serious: Yes (Hospitalization, Other)
  Sender: FDA-Public Use
  Company Number: US-009507513-1306USA001422

PATIENT
  Sex: Male
  Weight: 113.83 kg

DRUGS (3)
  1. PROSCAR [Suspect]
     Active Substance: FINASTERIDE
     Indication: BENIGN PROSTATIC HYPERPLASIA
     Dosage: 5 MG, QD
     Route: 048
     Dates: start: 1995, end: 20070608
  2. FINASTERIDE. [Suspect]
     Active Substance: FINASTERIDE
     Indication: PRODUCT USED FOR UNKNOWN INDICATION
     Dosage: 5 MG, QD
     Route: 048
     Dates: start: 20060908
  3. FINASTERIDE. [Suspect]
     Active Substance: FINASTERIDE
     Indication: PRODUCT USED FOR UNKNOWN INDICATION
     Dosage: 5 MG, QD
     Route: 048
     Dates: start: 20070206

REACTIONS (39)
  - Prostate cancer [Unknown]
  - Neck surgery [Unknown]
  - Libido decreased [Not Recovered/Not Resolved]
  - Arthralgia [Unknown]
  - Peyronie^s disease [Not Recovered/Not Resolved]
  - Sensory loss [Not Recovered/Not Resolved]
  - Prostatitis [Unknown]
  - Urinary tract infection [Unknown]
  - Musculoskeletal pain [Unknown]
  - Chest pain [Unknown]
  - Sinusitis [Unknown]
  - Depression [Unknown]
  - Drug ineffective [Unknown]
  - Iron deficiency anaemia [Unknown]
  - Genital disorder male [Unknown]
  - Endocrine disorder [Unknown]
  - Anxiety [Unknown]
  - Sinus bradycardia [Unknown]
  - Anaemia [Unknown]
  - Somnolence [Unknown]
  - Urinary tract infection [Unknown]
  - Diabetes mellitus [Unknown]
  - Ear disorder [Unknown]
  - Heart rate irregular [Unknown]
  - Erectile dysfunction [Not Recovered/Not Resolved]
  - Fatigue [Unknown]
  - Chest pain [Unknown]
  - Back pain [Unknown]
  - Radical prostatectomy [Unknown]
  - Lipids increased [Unknown]
  - Angina pectoris [Unknown]
  - Ear pain [Unknown]
  - Sexual dysfunction [Not Recovered/Not Resolved]
  - Radiculopathy [Unknown]
  - X-ray treatment [Unknown]
  - Chest pain [Unknown]
  - Gastrooesophageal reflux disease [Unknown]
  - Muscle strain [Unknown]
  - Joint swelling [Unknown]

NARRATIVE: CASE EVENT DATE: 19950907
